FAERS Safety Report 5344499-5 (Version None)
Quarter: 2007Q2

REPORT INFORMATION
  Report Type: 
  Country: None (occurrence: None)
  Receive Date: 20070604
  Receipt Date: 20070523
  Transmission Date: 20071010
  Serious: Yes (Other)
  Sender: FDA-Public Use
  Company Number: DE-GENENTECH-242194

PATIENT
  Age: 41 Year
  Sex: Male

DRUGS (3)
  1. MABTHERA [Suspect]
     Indication: EVAN'S SYNDROME
  2. IMMUNOSUPPRESSANT NOS [Concomitant]
     Indication: DRUG USE FOR UNKNOWN INDICATION
  3. CORTISONE ACETATE [Concomitant]
     Indication: DRUG USE FOR UNKNOWN INDICATION

REACTIONS (1)
  - BLINDNESS [None]
